FAERS Safety Report 6690063-5 (Version None)
Quarter: 2010Q2

REPORT INFORMATION
  Report Type: 
  Country: None (occurrence: None)
  Receive Date: 20100421
  Receipt Date: 20100413
  Transmission Date: 20101027
  Serious: Yes (Other)
  Sender: FDA-Public Use
  Company Number: PHHY2010DE24041

PATIENT

DRUGS (3)
  1. SANDIMMUNE [Suspect]
     Indication: PSORIASIS
     Dosage: UNK
     Dates: start: 20000101, end: 20090101
  2. SANDIMMUNE [Suspect]
     Dosage: 50 MG, BID
     Dates: start: 20090101
  3. CORTICOSTEROID NOS [Concomitant]
     Indication: PSORIASIS

REACTIONS (5)
  - BLOOD CREATININE INCREASED [None]
  - GLOMERULONEPHRITIS MINIMAL LESION [None]
  - NEPHROTIC SYNDROME [None]
  - PROTEINURIA [None]
  - RENAL FAILURE [None]
